FAERS Safety Report 24015337 (Version 1)
Quarter: 2024Q2

REPORT INFORMATION
  Report Type: Spontaneous
  Country: JP (occurrence: None)
  Receive Date: 20240626
  Receipt Date: 20240626
  Transmission Date: 20240716
  Serious: Yes (Other)
  Sender: FDA-Public Use
  Company Number: 2023A123863

PATIENT
  Age: 43 Year
  Sex: Female

DRUGS (5)
  1. TAGRISSO [Suspect]
     Active Substance: OSIMERTINIB
     Indication: Non-small cell lung cancer
     Route: 048
     Dates: start: 20221015, end: 20230727
  2. TAGRISSO [Suspect]
     Active Substance: OSIMERTINIB
     Indication: Non-small cell lung cancer
     Route: 048
     Dates: start: 20240419, end: 20240530
  3. DENOSUMAB [Concomitant]
     Active Substance: DENOSUMAB
     Dosage: DOSE UNKNOWN
     Route: 065
     Dates: start: 20221007, end: 20230309
  4. PROPYLTHIOURACIL [Concomitant]
     Active Substance: PROPYLTHIOURACIL
     Dosage: DOSE UNKNOWN
     Route: 065
  5. UNSPECIFIED INGREDIENT [Concomitant]
     Active Substance: UNSPECIFIED INGREDIENT
     Dosage: DOSE UNKNOWN
     Route: 062

REACTIONS (7)
  - Pneumothorax [Not Recovered/Not Resolved]
  - Pneumonitis [Recovering/Resolving]
  - Dermatitis acneiform [Unknown]
  - Urticaria [Unknown]
  - Liver disorder [Unknown]
  - Paronychia [Unknown]
  - Diarrhoea [Unknown]

NARRATIVE: CASE EVENT DATE: 20221017
